FAERS Safety Report 9055522 (Version 1)
Quarter: 2013Q1

REPORT INFORMATION
  Report Type: Spontaneous
  Country: JP (occurrence: JP)
  Receive Date: 20130206
  Receipt Date: 20130206
  Transmission Date: 20140127
  Serious: Yes (Hospitalization)
  Sender: FDA-Public Use
  Company Number: JP-GLAXOSMITHKLINE-B0858124A

PATIENT
  Age: 88 None
  Sex: Male
  Weight: 59 kg

DRUGS (3)
  1. ARIXTRA [Suspect]
     Indication: DEEP VEIN THROMBOSIS
     Dosage: 7.5MG PER DAY
     Route: 058
     Dates: start: 20121227, end: 20121230
  2. PLAVIX [Suspect]
     Indication: CEREBROVASCULAR DISORDER
     Dosage: 75MG PER DAY
     Route: 048
  3. WARFARIN [Concomitant]
     Indication: DEEP VEIN THROMBOSIS
     Dosage: 3MG PER DAY
     Route: 048
     Dates: start: 20121228

REACTIONS (4)
  - Muscle haemorrhage [Not Recovered/Not Resolved]
  - Muscle haemorrhage [Unknown]
  - Pain in extremity [Unknown]
  - Local swelling [Unknown]
